FAERS Safety Report 7885087-6 (Version None)
Quarter: 2011Q4

REPORT INFORMATION
  Report Type: 
  Country: None (occurrence: None)
  Receive Date: 20111102
  Receipt Date: 20100802
  Transmission Date: 20120403
  Serious: No
  Sender: FDA-Public Use
  Company Number: US-BAYER-201029216NA

PATIENT
  Age: 54 Year
  Sex: Female

DRUGS (1)
  1. AVELOX [Suspect]
     Indication: SINUSITIS
     Dosage: 400 MG, ONCE
     Route: 048
     Dates: start: 20100722, end: 20100722

REACTIONS (9)
  - EAR DISCOMFORT [None]
  - MALAISE [None]
  - DIZZINESS [None]
  - NAUSEA [None]
  - VOMITING [None]
  - BURNING SENSATION [None]
  - URTICARIA [None]
  - DIARRHOEA [None]
  - GENERALISED ERYTHEMA [None]
